FAERS Safety Report 19247300 (Version 2)
Quarter: 2021Q2

REPORT INFORMATION
  Report Type: Spontaneous
  Country: US (occurrence: US)
  Receive Date: 20210512
  Receipt Date: 20210514
  Transmission Date: 20210717
  Serious: No
  Sender: FDA-Public Use
  Company Number: NVSC2021US106794

PATIENT

DRUGS (1)
  1. VOLTARENE (DICLOFENAC SODIUM) [Suspect]
     Active Substance: DICLOFENAC SODIUM
     Indication: ARTHRITIS
     Dosage: UNK, QD
     Route: 065
     Dates: start: 20201030

REACTIONS (2)
  - Inappropriate schedule of product administration [Unknown]
  - Rash [Unknown]
